FAERS Safety Report 18834320 (Version 4)
Quarter: 2021Q4

REPORT INFORMATION
  Report Type: Report from Study
  Country: JP (occurrence: JP)
  Receive Date: 20210203
  Receipt Date: 20211213
  Transmission Date: 20220304
  Serious: Yes (Disabling, Other)
  Sender: FDA-Public Use
  Company Number: JP-AMGEN-JPNNI2019166564

PATIENT
  Age: 37 Year
  Sex: Male

DRUGS (9)
  1. BLINATUMOMAB [Suspect]
     Active Substance: BLINATUMOMAB
     Indication: B precursor type acute leukaemia
     Dosage: 9 MICROGRAM, QD
     Route: 042
     Dates: start: 20191002, end: 20191008
  2. BLINATUMOMAB [Suspect]
     Active Substance: BLINATUMOMAB
     Dosage: 28 MICROGRAM, QD
     Route: 042
     Dates: start: 20191009, end: 20191030
  3. BLINATUMOMAB [Suspect]
     Active Substance: BLINATUMOMAB
     Dosage: 28 MICROGRAM, QD
     Route: 042
     Dates: start: 20191113, end: 20191122
  4. CYCLOPHOSPHAMIDE\DOXORUBICIN\PREDNISONE\VINCRISTINE [Concomitant]
     Active Substance: CYCLOPHOSPHAMIDE\DOXORUBICIN\PREDNISONE\VINCRISTINE
     Dosage: UNK
  5. DEXAMETHASONE [Concomitant]
     Active Substance: DEXAMETHASONE
     Indication: Chronic rhinosinusitis with nasal polyps
     Dosage: UNK
     Dates: start: 20190814, end: 20190824
  6. DEXAMETHASONE [Concomitant]
     Active Substance: DEXAMETHASONE
     Indication: Acute lymphocytic leukaemia
     Dosage: UNK
     Dates: start: 20191002, end: 20191002
  7. DEXAMETHASONE [Concomitant]
     Active Substance: DEXAMETHASONE
     Dosage: UNK
     Dates: start: 20191009, end: 20191009
  8. DEXAMETHASONE [Concomitant]
     Active Substance: DEXAMETHASONE
     Dosage: UNK
     Dates: start: 20191113, end: 20191113
  9. ICLUSIG [Concomitant]
     Active Substance: PONATINIB
     Dosage: UNK
     Dates: end: 20191014

REACTIONS (5)
  - Optic neuritis [Recovered/Resolved with Sequelae]
  - Febrile neutropenia [Recovered/Resolved]
  - Infusion site haemorrhage [Not Recovered/Not Resolved]
  - Pyrexia [Recovering/Resolving]
  - White blood cell count decreased [Not Recovered/Not Resolved]

NARRATIVE: CASE EVENT DATE: 20191001
